FAERS Safety Report 6163817-1 (Version None)
Quarter: 2009Q2

REPORT INFORMATION
  Report Type: 
  Country: None (occurrence: None)
  Receive Date: 20090420
  Receipt Date: 20090406
  Transmission Date: 20091009
  Serious: Yes (Other)
  Sender: FDA-Public Use
  Company Number: ACO_00536_2009

PATIENT
  Sex: Male
  Weight: 120 kg

DRUGS (2)
  1. TIZANIDINE HYDROCHLORIDE [Suspect]
     Indication: MUSCLE DISORDER
     Dosage: (12 MG)
  2. ARTHRYL /01025801/ [Concomitant]

REACTIONS (9)
  - BALANCE DISORDER [None]
  - CONFUSIONAL STATE [None]
  - DIARRHOEA [None]
  - DRY MOUTH [None]
  - DYSARTHRIA [None]
  - FATIGUE [None]
  - HEART RATE DECREASED [None]
  - MEMORY IMPAIRMENT [None]
  - TONGUE DISORDER [None]
